FAERS Safety Report 20168420 (Version 1)
Quarter: 2021Q4

REPORT INFORMATION
  Report Type: Report from Study
  Country: US (occurrence: None)
  Receive Date: 20211210
  Receipt Date: 20211210
  Transmission Date: 20220303
  Serious: Yes (Hospitalization)
  Sender: FDA-Public Use
  Company Number: 2021A854212

PATIENT
  Sex: Female
  Weight: 61.2 kg

DRUGS (3)
  1. TAGRISSO [Suspect]
     Active Substance: OSIMERTINIB
     Indication: Lung neoplasm malignant
     Route: 048
  2. VITAMIN B12 [Concomitant]
     Active Substance: CYANOCOBALAMIN
     Route: 065
  3. VITAMINS [Concomitant]
     Active Substance: VITAMINS
     Route: 065

REACTIONS (4)
  - Pancreatitis [Recovered/Resolved]
  - Cystitis [Recovered/Resolved]
  - COVID-19 [Unknown]
  - Nephrolithiasis [Recovered/Resolved]
